FAERS Safety Report 23469975 (Version 1)
Quarter: 2024Q1

REPORT INFORMATION
  Report Type: Report from Study
  Country: US (occurrence: US)
  Receive Date: 20240202
  Receipt Date: 20240202
  Transmission Date: 20240409
  Serious: Yes (Other)
  Sender: FDA-Public Use
  Company Number: US-ABBVIE-5613243

PATIENT
  Sex: Female

DRUGS (1)
  1. RINVOQ [Suspect]
     Active Substance: UPADACITINIB
     Indication: Rheumatoid arthritis
     Route: 048
     Dates: start: 20220630

REACTIONS (10)
  - Oral surgery [Unknown]
  - Neck surgery [Unknown]
  - Burning sensation [Unknown]
  - Pain [Unknown]
  - Skin discolouration [Unknown]
  - Pain in extremity [Unknown]
  - Erythema [Unknown]
  - Limb operation [Unknown]
  - Foot operation [Unknown]
  - Limb operation [Unknown]
